FAERS Safety Report 25339070 (Version 1)
Quarter: 2025Q2

REPORT INFORMATION
  Report Type: Spontaneous
  Country: US (occurrence: US)
  Receive Date: 20250521
  Receipt Date: 20250521
  Transmission Date: 20250716
  Serious: No
  Sender: AMNEAL
  Company Number: US-AMNEAL PHARMACEUTICALS-2025-AMRX-01244

PATIENT

DRUGS (1)
  1. CREXONT [Suspect]
     Active Substance: CARBIDOPA\LEVODOPA
     Indication: Product used for unknown indication
     Dosage: UNK, 1X/DAY
     Route: 065

REACTIONS (2)
  - Restlessness [Unknown]
  - Treatment noncompliance [Unknown]

NARRATIVE: CASE EVENT DATE: 20250401
